FAERS Safety Report 16460565 (Version 1)
Quarter: 2019Q2

REPORT INFORMATION
  Report Type: Spontaneous
  Country: US (occurrence: US)
  Receive Date: 20190620
  Receipt Date: 20190620
  Transmission Date: 20190711
  Serious: No
  Sender: FDA-Public Use
  Company Number: US-SA-2019SA165271

PATIENT
  Sex: Male

DRUGS (12)
  1. FISH OIL [Concomitant]
     Active Substance: FISH OIL
  2. ALENDRONATE [Concomitant]
     Active Substance: ALENDRONATE SODIUM
  3. FOLIC ACID. [Concomitant]
     Active Substance: FOLIC ACID
  4. METHOCARBAMOL. [Concomitant]
     Active Substance: METHOCARBAMOL
  5. PREDNISONE. [Concomitant]
     Active Substance: PREDNISONE
  6. KEVZARA [Suspect]
     Active Substance: SARILUMAB
     Dosage: 150 MG, QOW
     Route: 058
  7. METHOTREXATE. [Concomitant]
     Active Substance: METHOTREXATE
  8. BUPIVACAINE. [Concomitant]
     Active Substance: BUPIVACAINE
  9. CALCIUM [Concomitant]
     Active Substance: CALCIUM
  10. KEVZARA [Suspect]
     Active Substance: SARILUMAB
     Dosage: 200 MG, QOW
     Route: 058
  11. VITAMIN D [VITAMIN D NOS] [Concomitant]
     Active Substance: VITAMIN D NOS
  12. SULFASALAZINE. [Suspect]
     Active Substance: SULFASALAZINE

REACTIONS (5)
  - Arthralgia [Unknown]
  - Blood test abnormal [Unknown]
  - Abdominal discomfort [Unknown]
  - Sleep disorder [Unknown]
  - Decreased appetite [Unknown]
